FAERS Safety Report 7292972-5 (Version None)
Quarter: 2011Q1

REPORT INFORMATION
  Report Type: 
  Country: None (occurrence: None)
  Receive Date: 20110209
  Receipt Date: 20110209
  Transmission Date: 20110831
  Serious: Yes (Hospitalization)
  Sender: FDA-Public Use
  Company Number: None

PATIENT
  Age: 57 Year
  Sex: Male
  Weight: 77.1115 kg

DRUGS (1)
  1. AVELOX [Suspect]
     Indication: PNEUMONIA
     Dosage: 400MG ONCE IV DRIP  1 DOSE
     Route: 041
     Dates: start: 20110120, end: 20110120

REACTIONS (6)
  - HYPOTENSION [None]
  - PRURITUS [None]
  - HYPERHIDROSIS [None]
  - COLD SWEAT [None]
  - LIP SWELLING [None]
  - DYSPNOEA [None]
